FAERS Safety Report 23083932 (Version 1)
Quarter: 2023Q4

REPORT INFORMATION
  Report Type: Spontaneous
  Country: US (occurrence: None)
  Receive Date: 20231018
  Receipt Date: 20231018
  Transmission Date: 20240109
  Serious: Yes (Hospitalization)
  Sender: FDA-Public Use
  Company Number: None

PATIENT
  Age: 95 Year
  Sex: Male
  Weight: 58.0 kg

DRUGS (2)
  1. MEROPENEM [Suspect]
     Active Substance: MEROPENEM
     Dosage: FREQUENCY : TWICE A DAY;?
     Route: 042
     Dates: start: 20221102, end: 20221104
  2. ERTAPENEM [Suspect]
     Active Substance: ERTAPENEM
     Dates: end: 20221104

REACTIONS (2)
  - Mental status changes [None]
  - Seizure [None]

NARRATIVE: CASE EVENT DATE: 20221103
